FAERS Safety Report 15630569 (Version 1)
Quarter: 2018Q4

REPORT INFORMATION
  Report Type: Spontaneous
  Country: AT (occurrence: AT)
  Receive Date: 20181119
  Receipt Date: 20181119
  Transmission Date: 20190205
  Serious: Yes (Life-Threatening, Other)
  Sender: FDA-Public Use
  Company Number: AT-BRISTOL-MYERS SQUIBB COMPANY-BMS-2018-106168

PATIENT
  Age: 74 Year
  Sex: Male
  Weight: 104 kg

DRUGS (1)
  1. ELIQUIS [Suspect]
     Active Substance: APIXABAN
     Indication: CEREBROVASCULAR ACCIDENT PROPHYLAXIS
     Dosage: 2 DF/1 DAY, UNK
     Route: 065
     Dates: start: 2016, end: 201811

REACTIONS (2)
  - Atrial thrombosis [Not Recovered/Not Resolved]
  - Cardiac valve vegetation [Not Recovered/Not Resolved]

NARRATIVE: CASE EVENT DATE: 201808
